FAERS Safety Report 23886926 (Version 1)
Quarter: 2024Q2

REPORT INFORMATION
  Report Type: Other
  Country: BR (occurrence: BR)
  Receive Date: 20240523
  Receipt Date: 20240523
  Transmission Date: 20240716
  Serious: Yes (Hospitalization, Other)
  Sender: FDA-Public Use
  Company Number: BR-BP-2024-38737169

PATIENT
  Age: 12 Year
  Sex: Female
  Weight: 49 kg

DRUGS (4)
  1. PRIMAQUINE [Suspect]
     Active Substance: PRIMAQUINE
     Indication: Malaria
     Dosage: 30 MG, QD
     Route: 065
     Dates: start: 202101, end: 202101
  2. PRIMAQUINE [Suspect]
     Active Substance: PRIMAQUINE
     Indication: Malaria
     Dosage: 30 MG, QD
     Route: 065
     Dates: start: 202105, end: 202105
  3. CHLOROQUINE [Concomitant]
     Active Substance: CHLOROQUINE
     Indication: Malaria
     Dosage: 450 MG, QD
     Route: 065
     Dates: start: 202101, end: 202101
  4. CHLOROQUINE [Concomitant]
     Active Substance: CHLOROQUINE
     Indication: Malaria
     Dosage: 450 MG, QD
     Route: 065
     Dates: start: 202105, end: 202105

REACTIONS (3)
  - Drug ineffective [Unknown]
  - Malaria relapse [Recovered/Resolved]
  - Malaria relapse [Recovered/Resolved]

NARRATIVE: CASE EVENT DATE: 20210501
